FAERS Safety Report 9350331 (Version 1)
Quarter: 2013Q2

REPORT INFORMATION
  Report Type: Report from Study
  Country: CA (occurrence: CA)
  Receive Date: 20130617
  Receipt Date: 20130617
  Transmission Date: 20140414
  Serious: Yes (Other)
  Sender: FDA-Public Use
  Company Number: CA-JNJFOC-20130607174

PATIENT
  Age: 49 Year
  Sex: Female
  Weight: 45.6 kg

DRUGS (13)
  1. REMICADE [Suspect]
     Indication: CROHN^S DISEASE
     Route: 042
     Dates: start: 20120427
  2. OXYCODONE [Concomitant]
     Route: 065
  3. PENTASA [Concomitant]
     Route: 065
  4. MULTIVITAMINS [Concomitant]
     Route: 065
  5. IMURAN [Concomitant]
     Route: 065
  6. CALCIUM [Concomitant]
     Route: 065
  7. ACTONEL [Concomitant]
     Route: 065
  8. MAGNESIUM [Concomitant]
     Route: 065
  9. ENTOCORT [Concomitant]
     Route: 065
  10. VITAMIN D3 [Concomitant]
     Route: 065
  11. WARFARIN [Concomitant]
     Route: 065
  12. WELLBUTRIN [Concomitant]
     Route: 065
  13. KENALOG [Concomitant]
     Route: 065

REACTIONS (1)
  - Central venous catheterisation [Recovering/Resolving]
